FAERS Safety Report 8365446-8 (Version None)
Quarter: 2012Q2

REPORT INFORMATION
  Report Type: 
  Country: None (occurrence: None)
  Receive Date: 20120516
  Receipt Date: 20120514
  Transmission Date: 20120825
  Serious: Yes (Life-Threatening, Hospitalization, Other)
  Sender: FDA-Public Use
  Company Number: CA-PFIZER INC-2012077349

PATIENT
  Age: 64 Year
  Sex: Female

DRUGS (7)
  1. PRISTIQ [Suspect]
     Indication: BIPOLAR II DISORDER
     Dosage: 100 MG, 1X/DAY
     Route: 048
     Dates: start: 20111001, end: 20120228
  2. DETROL LA [Concomitant]
     Indication: URINARY INCONTINENCE
     Dosage: 4 MG, 1X/DAY
     Route: 048
  3. VALPROATE SODIUM [Concomitant]
     Indication: AFFECTIVE DISORDER
     Dosage: 500 MG, 2X/DAY
     Route: 048
  4. ADVAIR DISKUS 100/50 [Concomitant]
     Indication: ASTHMA
     Dosage: 500 UG,(250MCG TWICE)  2X/DAY
  5. PRISTIQ [Suspect]
     Indication: DEPRESSION
  6. CRESTOR [Concomitant]
     Indication: DYSLIPIDAEMIA
     Dosage: 5 MG, 1X/DAY
     Route: 048
  7. LORAZEPAM [Concomitant]
     Indication: ANXIETY
     Dosage: 1 MG, 2X/DAY AS NEEDED
     Route: 060

REACTIONS (5)
  - CLUMSINESS [None]
  - BLOOD PRESSURE INCREASED [None]
  - FALL [None]
  - CONFUSIONAL STATE [None]
  - BALANCE DISORDER [None]
